FAERS Safety Report 5323065-1 (Version None)
Quarter: 2007Q2

REPORT INFORMATION
  Report Type: 
  Country: None (occurrence: None)
  Receive Date: 20070507
  Receipt Date: 20070420
  Transmission Date: 20071010
  Serious: Yes (Death)
  Sender: FDA-Public Use
  Company Number: 8023404

PATIENT
  Age: 21 Year
  Sex: Male

DRUGS (1)
  1. TUSSIONEX [Suspect]

REACTIONS (6)
  - ACCIDENTAL OVERDOSE [None]
  - ALCOHOL USE [None]
  - BRONCHOPNEUMONIA [None]
  - CHOKING [None]
  - PULMONARY CONGESTION [None]
  - PULMONARY OEDEMA [None]
